FAERS Safety Report 16132775 (Version 1)
Quarter: 2019Q1

REPORT INFORMATION
  Report Type: Spontaneous
  Country: US (occurrence: US)
  Receive Date: 20190226
  Receipt Date: 20190226
  Transmission Date: 20190418
  Serious: No
  Sender: FDA-Public Use
  Company Number: None

PATIENT
  Age: 67 Year
  Sex: Male

DRUGS (1)
  1. HARVONI [Suspect]
     Active Substance: LEDIPASVIR\SOFOSBUVIR
     Dates: start: 20190202

REACTIONS (4)
  - Fatigue [None]
  - Protein urine present [None]
  - Diarrhoea [None]
  - Influenza like illness [None]

NARRATIVE: CASE EVENT DATE: 20190226
